FAERS Safety Report 17700324 (Version 1)
Quarter: 2020Q2

REPORT INFORMATION
  Report Type: Spontaneous
  Country: FR (occurrence: FR)
  Receive Date: 20200423
  Receipt Date: 20200423
  Transmission Date: 20200714
  Serious: Yes (Death)
  Sender: FDA-Public Use
  Company Number: FR-INDIVIOR US-INDV-124543-2020

PATIENT
  Age: 35 Year
  Sex: Male

DRUGS (2)
  1. SUBUTEX [Suspect]
     Active Substance: BUPRENORPHINE HYDROCHLORIDE
     Indication: DRUG ABUSE
     Dosage: 1 UNK, PRN
     Route: 042
     Dates: end: 20200414
  2. SKENAN [Suspect]
     Active Substance: MORPHINE SULFATE
     Indication: DRUG ABUSE
     Dosage: 1 UNK, PRN
     Route: 042
     Dates: end: 20200414

REACTIONS (3)
  - Intentional product use issue [Recovered/Resolved]
  - Drug abuse [Fatal]
  - Housebound [Fatal]

NARRATIVE: CASE EVENT DATE: 202003
